FAERS Safety Report 9644251 (Version 1)
Quarter: 2013Q4

REPORT INFORMATION
  Report Type: Spontaneous
  Country: US (occurrence: US)
  Receive Date: 20131024
  Receipt Date: 20131024
  Transmission Date: 20140711
  Serious: Yes (Hospitalization)
  Sender: FDA-Public Use
  Company Number: US-AMGEN-USASP2013074650

PATIENT
  Age: 33 Year
  Sex: Female
  Weight: 100 kg

DRUGS (15)
  1. PROCRIT [Suspect]
     Indication: NEPHROGENIC ANAEMIA
     Dosage: 3000 UNIT, 3 TIMES/WK (ON MONDAY, WEDNESDAY, AND FRIDAY)
     Route: 058
     Dates: start: 201310
  2. CLINDAMYCIN [Concomitant]
     Dosage: UNK
     Route: 042
  3. ENOXAPARIN [Concomitant]
  4. PRENATAL VITAMINS                  /07499601/ [Concomitant]
     Dosage: UNK
  5. INSULIN [Concomitant]
     Dosage: UNK
  6. NIFEDIPINE [Concomitant]
     Dosage: UNK
  7. OXYCONTIN [Concomitant]
     Indication: PAIN
     Dosage: UNK
  8. NISOLDIPINE [Concomitant]
     Indication: BLOOD PRESSURE ABNORMAL
     Dosage: UNK
  9. MORPHINE [Concomitant]
     Indication: PAIN
     Dosage: UNK
  10. ZOLOFT [Concomitant]
     Dosage: UNK
  11. PROTONIX [Concomitant]
     Dosage: UNK
  12. METAMUCIL                          /00029101/ [Concomitant]
     Dosage: UNK
  13. SODIUM BICARBONATE [Concomitant]
     Dosage: UNK
  14. FLORASTOR [Concomitant]
     Dosage: UNK
  15. LOVENOX [Concomitant]
     Dosage: UNK

REACTIONS (2)
  - Staphylococcal osteomyelitis [Not Recovered/Not Resolved]
  - Jaundice [Not Recovered/Not Resolved]
